FAERS Safety Report 11591041 (Version 2)
Quarter: 2015Q4

REPORT INFORMATION
  Report Type: Spontaneous
  Country: JP (occurrence: JP)
  Receive Date: 20151003
  Receipt Date: 20151030
  Transmission Date: 20160304
  Serious: Yes (Hospitalization, Other)
  Sender: FDA-Public Use
  Company Number: JP-009507513-1509JPN015381

PATIENT
  Age: 65 Year
  Sex: Male

DRUGS (1)
  1. GLACTIV [Suspect]
     Active Substance: SITAGLIPTIN
     Indication: TYPE 2 DIABETES MELLITUS
     Dosage: 25 MG, QD (12.5 MG, 25 MG, 50 MG, 100 MG)
     Route: 048
     Dates: end: 20150925

REACTIONS (2)
  - Hypoglycaemia [Unknown]
  - Hepatic failure [Unknown]

NARRATIVE: CASE EVENT DATE: 20150925
